FAERS Safety Report 13937802 (Version 7)
Quarter: 2020Q2

REPORT INFORMATION
  Report Type: Spontaneous
  Country: US (occurrence: US)
  Receive Date: 20170905
  Receipt Date: 20200618
  Transmission Date: 20200713
  Serious: No
  Sender: FDA-Public Use
  Company Number: US-PFIZER INC-2017371975

PATIENT
  Age: 6 Year
  Sex: Female
  Weight: 23 kg

DRUGS (4)
  1. GENOTROPIN [Suspect]
     Active Substance: SOMATROPIN
     Dosage: 1.6 MG, DAILY
     Dates: start: 20170729
  2. GENOTROPIN [Suspect]
     Active Substance: SOMATROPIN
     Indication: TURNER^S SYNDROME
     Dosage: 1 MG, DAILY
     Dates: start: 20170727, end: 20170823
  3. GENOTROPIN [Suspect]
     Active Substance: SOMATROPIN
     Dosage: 20 MG, ONCE DAILY
     Dates: start: 20170701
  4. GENOTROPIN [Suspect]
     Active Substance: SOMATROPIN
     Dosage: UNK
     Dates: start: 201708

REACTIONS (6)
  - Product dose omission [Unknown]
  - Device breakage [Unknown]
  - Vomiting [Unknown]
  - Off label use [Unknown]
  - Malaise [Recovered/Resolved]
  - Product use issue [Unknown]

NARRATIVE: CASE EVENT DATE: 20170701
